FAERS Safety Report 6589643-7 (Version None)
Quarter: 2010Q1

REPORT INFORMATION
  Report Type: 
  Country: None (occurrence: None)
  Receive Date: 20100212
  Receipt Date: 20100128
  Transmission Date: 20100710
  Serious: Yes (Other)
  Sender: FDA-Public Use
  Company Number: 2009003577

PATIENT
  Age: 56 Year
  Sex: Female

DRUGS (9)
  1. ERLOTINIB            (ERLOTINIB) (TABLET) [Suspect]
     Indication: NON-SMALL CELL LUNG CANCER
     Dosage: (150 MG, QD), ORAL
     Route: 048
     Dates: start: 20090826, end: 20091020
  2. ARQ197/PLACEBO (CAPSULES) [Suspect]
     Indication: NON-SMALL CELL LUNG CANCER
     Dosage: (720 MG, 360 MG BID), ORAL
     Route: 048
     Dates: start: 20090826, end: 20091020
  3. OXYCODONE HCL [Concomitant]
  4. IBUPROFEN [Concomitant]
  5. CYCLOSPORINE [Concomitant]
  6. CLINDAMYCIN HCL [Concomitant]
  7. TRIAMCINOLONE [Concomitant]
  8. ZOFRAN [Concomitant]
  9. ZYPREXA [Concomitant]

REACTIONS (2)
  - MALIGNANT NEOPLASM PROGRESSION [None]
  - PULMONARY EMBOLISM [None]
